FAERS Safety Report 8110801-4 (Version None)
Quarter: 2012Q1

REPORT INFORMATION
  Report Type: 
  Country: None (occurrence: None)
  Receive Date: 20120203
  Receipt Date: 20120123
  Transmission Date: 20120608
  Serious: Yes (Hospitalization, Other)
  Sender: FDA-Public Use
  Company Number: JP-JNJFOC-20061202933

PATIENT
  Sex: Female
  Weight: 54 kg

DRUGS (14)
  1. REMICADE [Suspect]
     Route: 042
     Dates: start: 20060714
  2. PREDNISOLONE [Suspect]
     Route: 048
     Dates: start: 20031201, end: 20060825
  3. CLARITHROMYCIN [Concomitant]
     Indication: BRONCHIECTASIS
     Route: 048
     Dates: start: 20031213, end: 20060825
  4. SELBEX [Concomitant]
     Indication: GASTRITIS
     Route: 048
     Dates: start: 20031213, end: 20060825
  5. LOXONIN [Concomitant]
     Indication: RHEUMATOID ARTHRITIS
     Route: 048
     Dates: start: 20040109, end: 20060825
  6. ALENDRONATE SODIUM [Concomitant]
     Indication: OSTEOPOROSIS
     Route: 048
     Dates: start: 20031213, end: 20060825
  7. FOLIC ACID [Concomitant]
     Indication: RHEUMATOID ARTHRITIS
     Dosage: 5MG/W
     Route: 048
     Dates: start: 20030101
  8. RHEUMATREX [Suspect]
     Indication: RHEUMATOID ARTHRITIS
     Dosage: 8MG/W
     Route: 048
     Dates: start: 20031213, end: 20060825
  9. PREDNISOLONE [Suspect]
     Route: 048
     Dates: start: 20061105
  10. VITAMEDIN [Concomitant]
     Indication: RHEUMATOID ARTHRITIS
     Route: 048
     Dates: start: 20030101
  11. REMICADE [Suspect]
     Indication: RHEUMATOID ARTHRITIS
     Dosage: 18 INFUSIONS ONUNKNOWN DATES
     Route: 042
  12. PREDNISOLONE [Suspect]
     Indication: RHEUMATOID ARTHRITIS
     Route: 048
     Dates: start: 20060826, end: 20061104
  13. REMICADE [Suspect]
     Route: 042
     Dates: start: 20031213
  14. JUVELA N [Concomitant]
     Indication: RHEUMATOID ARTHRITIS
     Route: 048
     Dates: start: 20030101

REACTIONS (1)
  - CYTOMEGALOVIRUS ENTEROCOLITIS [None]
